FAERS Safety Report 23961255 (Version 1)
Quarter: 2024Q2

REPORT INFORMATION
  Report Type: Spontaneous
  Country: DE (occurrence: DE)
  Receive Date: 20240611
  Receipt Date: 20240611
  Transmission Date: 20240716
  Serious: Yes (Other)
  Sender: FDA-Public Use
  Company Number: None

PATIENT
  Age: 68 Year
  Sex: Female
  Weight: 64 kg

DRUGS (1)
  1. PREDNISOLONE [Suspect]
     Active Substance: PREDNISOLONE
     Indication: Giant cell arteritis
     Dosage: FROM 60 MG DAY
     Route: 048
     Dates: start: 20231203

REACTIONS (8)
  - Gastric perforation [Unknown]
  - Alopecia [Unknown]
  - Depression [Unknown]
  - Haematology test abnormal [Unknown]
  - Impaired healing [Unknown]
  - Sleep disorder [Unknown]
  - Cushing^s syndrome [Unknown]
  - Visual impairment [Unknown]

NARRATIVE: CASE EVENT DATE: 20240115
